FAERS Safety Report 6698985-6 (Version None)
Quarter: 2010Q2

REPORT INFORMATION
  Report Type: 
  Country: None (occurrence: None)
  Receive Date: 20100427
  Receipt Date: 20100422
  Transmission Date: 20101027
  Serious: Yes (Disabling)
  Sender: FDA-Public Use
  Company Number: D0067418A

PATIENT
  Sex: Male

DRUGS (2)
  1. LAMOTRIGINE (RATIOPHARM) [Suspect]
     Route: 048
  2. KEPPRA [Concomitant]
     Route: 048

REACTIONS (1)
  - TEETH BRITTLE [None]
